FAERS Safety Report 13592257 (Version 1)
Quarter: 2017Q2

REPORT INFORMATION
  Report Type: Spontaneous
  Country: US (occurrence: US)
  Receive Date: 20170530
  Receipt Date: 20170530
  Transmission Date: 20170830
  Serious: No
  Sender: FDA-Public Use
  Company Number: US-MIST-STN-2017-0243

PATIENT
  Sex: Male
  Weight: 54.48 kg

DRUGS (4)
  1. FLUOXETINE HCL [Suspect]
     Active Substance: FLUOXETINE HYDROCHLORIDE
     Indication: PRODUCT USED FOR UNKNOWN INDICATION
     Dosage: 20MG CAPSULES
     Route: 048
  2. STENDRA [Suspect]
     Active Substance: AVANAFIL
     Indication: PRODUCT USED FOR UNKNOWN INDICATION
     Dosage: WOULD TAKE ONE AND THEN ANOTHER COUPLE WEEKS ANOTHER
     Route: 048
  3. VIAGRA [Suspect]
     Active Substance: SILDENAFIL CITRATE
     Indication: PRODUCT USED FOR UNKNOWN INDICATION
     Dosage: 50MG TABLET
     Route: 048
  4. TAMSULOSIN HCL [Concomitant]
     Active Substance: TAMSULOSIN
     Indication: PRODUCT USED FOR UNKNOWN INDICATION
     Dosage: IF BLOOD SUGAR IS LOW, IT IS OKAY.  IF SUGAR IS HIGH, URINARY TRACT SEEMS TO CONTRACT AND HE HAS TRO
     Route: 048

REACTIONS (2)
  - Drug effect decreased [Unknown]
  - Drug ineffective [Unknown]
